FAERS Safety Report 10236469 (Version 2)
Quarter: 2014Q3

REPORT INFORMATION
  Report Type: Spontaneous
  Country: FR (occurrence: FR)
  Receive Date: 20140613
  Receipt Date: 20140710
  Transmission Date: 20150326
  Serious: Yes (Life-Threatening, Hospitalization, Other)
  Sender: FDA-Public Use
  Company Number: FR-BRISTOL-MYERS SQUIBB COMPANY-20949061

PATIENT
  Age: 71 Year
  Sex: Male
  Weight: 75 kg

DRUGS (8)
  1. VASTEN [Concomitant]
     Active Substance: PRAVASTATIN SODIUM
     Dates: start: 2009
  2. PRAXILENE [Concomitant]
     Active Substance: NAFRONYL
     Dates: start: 2009
  3. TIORFAN [Concomitant]
     Active Substance: RACECADOTRIL
  4. XANAX [Concomitant]
     Active Substance: ALPRAZOLAM
  5. YERVOY [Suspect]
     Active Substance: IPILIMUMAB
     Indication: MALIGNANT MELANOMA
     Dosage: ALSO RECEIVED ON 04-MAR-2014
     Route: 042
     Dates: start: 20140123, end: 20140325
  6. ATENOLOL. [Concomitant]
     Active Substance: ATENOLOL
     Dates: start: 2009
  7. PREVISCAN [Concomitant]
     Active Substance: FLUINDIONE
     Dates: start: 2008
  8. ZYLORIC [Concomitant]
     Active Substance: ALLOPURINOL
     Dates: start: 2010

REACTIONS (2)
  - Colitis [Not Recovered/Not Resolved]
  - Rectal haemorrhage [Not Recovered/Not Resolved]

NARRATIVE: CASE EVENT DATE: 20140415
